FAERS Safety Report 7245264 (Version 4)
Quarter: 2013Q1

REPORT INFORMATION
  Report Type: Spontaneous
  Country: US (occurrence: US)
  Receive Date: 20100113
  Receipt Date: 20130324
  Transmission Date: 20140127
  Serious: Yes (Death, Other)
  Sender: FDA-Public Use
  Company Number: US-PFIZER INC-2010001186

PATIENT
  Age: 47 Year
  Sex: Male

DRUGS (8)
  1. DOXEPIN HCL [Suspect]
     Dosage: UNK
     Dates: end: 2008
  2. ATENOLOL [Suspect]
     Dosage: UNK
     Dates: end: 2008
  3. CITALOPRAM [Suspect]
     Dosage: UNK
     Dates: end: 2008
  4. BUSPIRONE [Suspect]
     Dosage: UNK
     Dates: end: 2008
  5. NORTRIPTYLINE [Suspect]
     Dosage: UNK
     Dates: end: 2008
  6. FLUOXETINE HYDROCHLORIDE [Suspect]
     Dosage: UNK
     Dates: end: 2008
  7. PHENOBARBITAL [Suspect]
     Dosage: UNK
     Dates: end: 2008
  8. DIGOXIN [Suspect]
     Dosage: UNK

REACTIONS (1)
  - Completed suicide [Fatal]
